FAERS Safety Report 6607830-6 (Version None)
Quarter: 2010Q1

REPORT INFORMATION
  Report Type: 
  Country: None (occurrence: None)
  Receive Date: 20100225
  Receipt Date: 20100225
  Transmission Date: 20100710
  Serious: Yes (Other)
  Sender: FDA-Public Use
  Company Number: None

PATIENT
  Sex: Male
  Weight: 71.2147 kg

DRUGS (7)
  1. OXYBUTYNIN CHLORIDE [Suspect]
     Indication: PROSTATIC DISORDER
     Dosage: ONE DAILY MOUTH
     Route: 048
     Dates: start: 20081219
  2. OXYBUTYNIN CHLORIDE [Suspect]
     Indication: POLLAKIURIA
     Dosage: TWO DAILY MOUTH
     Route: 048
     Dates: start: 20090820
  3. AMLODIPINE [Concomitant]
  4. METOPROLOL TARTRATE [Concomitant]
  5. PLAVIX [Concomitant]
  6. SIMVASTATIN [Concomitant]
  7. FLOMAX [Concomitant]

REACTIONS (3)
  - CHEST DISCOMFORT [None]
  - INSOMNIA [None]
  - RESTLESSNESS [None]
